FAERS Safety Report 4498630-4 (Version None)
Quarter: 2004Q4

REPORT INFORMATION
  Report Type: 
  Country: None (occurrence: None)
  Receive Date: 20041111
  Receipt Date: 20041006
  Transmission Date: 20050328
  Serious: Yes (Hospitalization, Other)
  Sender: FDA-Public Use
  Company Number: PHBS2004CA13339

PATIENT
  Age: 19 Year
  Sex: Female

DRUGS (3)
  1. PAMIDRONATE DISODIUM [Suspect]
     Indication: OSTEOGENESIS IMPERFECTA
     Dosage: 9 MG/KG/YEAR
     Route: 042
     Dates: start: 19960821, end: 20011211
  2. CALCIUM [Concomitant]
     Dosage: 1000 MG/D
  3. VITAMIN D [Concomitant]
     Dosage: 400 IU/D

REACTIONS (2)
  - CAESAREAN SECTION [None]
  - DRUG EXPOSURE DURING PREGNANCY [None]
